FAERS Safety Report 8209381-4 (Version None)
Quarter: 2012Q1

REPORT INFORMATION
  Report Type: 
  Country: None (occurrence: None)
  Receive Date: 20120314
  Receipt Date: 20120307
  Transmission Date: 20120608
  Serious: Yes (Hospitalization, Other)
  Sender: FDA-Public Use
  Company Number: US-BAYER-2012-023562

PATIENT
  Age: 32 Year
  Sex: Female
  Weight: 106.8 kg

DRUGS (7)
  1. YAZ [Suspect]
     Indication: PRODUCT USED FOR UNKNOWN INDICATION
     Dosage: UNK
     Dates: start: 20071001
  2. NORDETTE-21 [Concomitant]
     Dosage: DAILY
     Route: 048
  3. ZOLOFT [Concomitant]
     Dosage: 25 MG, ONCE
     Route: 048
  4. SYNTHROID [Concomitant]
  5. SINGULAIR [Concomitant]
     Dosage: 10 MG, ONCE
     Route: 048
  6. GLUCOPHAGE [Concomitant]
  7. BENICAR HCT [Concomitant]
     Dosage: 2CC/12.5 MG QD
     Route: 048

REACTIONS (1)
  - DEEP VEIN THROMBOSIS [None]
